FAERS Safety Report 24788393 (Version 1)
Quarter: 2024Q4

REPORT INFORMATION
  Report Type: Spontaneous
  Country: TR (occurrence: TR)
  Receive Date: 20241230
  Receipt Date: 20241230
  Transmission Date: 20250114
  Serious: Yes (Other)
  Sender: MSN LABORATORIES PRIVATE LIMITED
  Company Number: TR-MSNLABS-2024MSNLIT02854

PATIENT

DRUGS (3)
  1. ERLOTINIB [Suspect]
     Active Substance: ERLOTINIB
     Indication: Lung neoplasm malignant
     Route: 065
  2. PREDNISOLONE [Concomitant]
     Active Substance: PREDNISOLONE
     Indication: Sjogren^s syndrome
     Route: 065
  3. METHOTREXATE [Concomitant]
     Active Substance: METHOTREXATE
     Indication: Sjogren^s syndrome
     Route: 065

REACTIONS (4)
  - Meibomian gland dysfunction [Recovered/Resolved]
  - Condition aggravated [Recovered/Resolved]
  - Corneal erosion [Recovered/Resolved]
  - Blepharitis [Unknown]
